FAERS Safety Report 25743805 (Version 1)
Quarter: 2025Q3

REPORT INFORMATION
  Report Type: Spontaneous
  Country: US (occurrence: US)
  Receive Date: 20250831
  Receipt Date: 20250831
  Transmission Date: 20251020
  Serious: No
  Sender: SANOFI AVENTIS
  Company Number: US-SA-2025SA259375

PATIENT
  Age: 33 Year
  Sex: Female

DRUGS (8)
  1. KEVZARA [Suspect]
     Active Substance: SARILUMAB
     Indication: Depression
     Dosage: 200 MG, QOW
     Route: 058
     Dates: start: 2025
  2. CLOBETASOL [Concomitant]
     Active Substance: CLOBETASOL
  3. MUPIROCIN [Concomitant]
     Active Substance: MUPIROCIN
  4. CELEBREX [Concomitant]
     Active Substance: CELECOXIB
  5. NUVARING [Concomitant]
     Active Substance: ETHINYL ESTRADIOL\ETONOGESTREL
  6. CITALOPRAM HYDROCHLORIDE [Concomitant]
     Active Substance: CITALOPRAM HYDROCHLORIDE
  7. LAMOTRIGINE [Concomitant]
     Active Substance: LAMOTRIGINE
  8. PROPRANOLOL [Concomitant]
     Active Substance: PROPRANOLOL HYDROCHLORIDE

REACTIONS (12)
  - Dry skin [Not Recovered/Not Resolved]
  - Skin exfoliation [Not Recovered/Not Resolved]
  - Skin discolouration [Not Recovered/Not Resolved]
  - Injection site swelling [Unknown]
  - Oropharyngeal pain [Unknown]
  - Dysphagia [Unknown]
  - Injection site pruritus [Unknown]
  - Injection site erythema [Unknown]
  - Upper respiratory tract infection [Unknown]
  - Injection site rash [Unknown]
  - Productive cough [Unknown]
  - Product use in unapproved indication [Unknown]

NARRATIVE: CASE EVENT DATE: 20250101
